FAERS Safety Report 22119452 (Version 1)
Quarter: 2023Q1

REPORT INFORMATION
  Report Type: Spontaneous
  Country: US (occurrence: None)
  Receive Date: 20230320
  Receipt Date: 20230320
  Transmission Date: 20230418
  Serious: Yes (Other)
  Sender: FDA-Public Use
  Company Number: None

PATIENT
  Age: 66 Year
  Sex: Male
  Weight: 126.5 kg

DRUGS (2)
  1. METHYLNALTREXONE [Suspect]
     Active Substance: METHYLNALTREXONE
     Indication: Constipation
     Dosage: OTHER FREQUENCY : ONCE;?
     Route: 058
     Dates: start: 20230319, end: 20230319
  2. OXYCODONE [Concomitant]
     Active Substance: OXYCODONE
     Dates: start: 20230313, end: 20230319

REACTIONS (3)
  - Large intestine perforation [None]
  - Intestinal ischaemia [None]
  - Pneumatosis intestinalis [None]

NARRATIVE: CASE EVENT DATE: 20230319
